FAERS Safety Report 6527167-3 (Version None)
Quarter: 2010Q1

REPORT INFORMATION
  Report Type: 
  Country: None (occurrence: None)
  Receive Date: 20100105
  Receipt Date: 20091229
  Transmission Date: 20100710
  Serious: Yes (Hospitalization)
  Sender: FDA-Public Use
  Company Number: B0570104A

PATIENT
  Sex: Female

DRUGS (6)
  1. LAMICTAL [Suspect]
     Dosage: 25MG PER DAY
     Route: 048
     Dates: start: 20090213, end: 20090226
  2. LAMICTAL [Suspect]
     Dosage: 25MG TWICE PER DAY
     Route: 048
     Dates: start: 20090227, end: 20090305
  3. GABAPENTIN [Suspect]
     Dosage: 300MG THREE TIMES PER DAY
     Route: 048
     Dates: start: 20080101, end: 20090305
  4. MYSTAN [Concomitant]
     Dosage: 15MG PER DAY
     Route: 048
     Dates: start: 20081201
  5. TEGRETOL [Concomitant]
     Route: 048
  6. EXCEGRAN [Concomitant]
     Route: 048

REACTIONS (7)
  - BREAST PAIN [None]
  - DRUG ERUPTION [None]
  - MALAISE [None]
  - OCULAR HYPERAEMIA [None]
  - PYREXIA [None]
  - SWELLING FACE [None]
  - WHITE BLOOD CELL COUNT DECREASED [None]
